FAERS Safety Report 8061118-8 (Version None)
Quarter: 2012Q1

REPORT INFORMATION
  Report Type: 
  Country: None (occurrence: None)
  Receive Date: 20120120
  Receipt Date: 20110413
  Transmission Date: 20120608
  Serious: No
  Sender: FDA-Public Use
  Company Number: US-ALLERGAN-1105179US

PATIENT
  Age: 56 Year
  Sex: Female

DRUGS (7)
  1. BACLOFEN [Concomitant]
     Indication: MUSCLE SPASMS
  2. LYRICA [Concomitant]
     Indication: NEURALGIA
  3. SOOTHE [Concomitant]
     Indication: DRY EYE
     Dosage: UNK
     Route: 047
  4. TIROSINT [Concomitant]
     Indication: HYPOTHYROIDISM
  5. CELEBREX [Concomitant]
     Indication: ARTHRITIS
  6. RESTASIS [Suspect]
     Indication: DRY EYE
     Dosage: 2 GTT, BID
     Route: 047
     Dates: start: 20110201
  7. COPAXONE [Concomitant]
     Indication: MULTIPLE SCLEROSIS

REACTIONS (3)
  - MULTIPLE SCLEROSIS RELAPSE [None]
  - URINARY INCONTINENCE [None]
  - SEXUAL DYSFUNCTION [None]
